FAERS Safety Report 10166868 (Version 3)
Quarter: 2014Q3

REPORT INFORMATION
  Report Type: Spontaneous
  Country: US (occurrence: US)
  Receive Date: 20140512
  Receipt Date: 20140729
  Transmission Date: 20150326
  Serious: Yes (Other)
  Sender: FDA-Public Use
  Company Number: US-BAYER-2014-067868

PATIENT
  Age: 27 Year
  Sex: Female
  Weight: 51.25 kg

DRUGS (4)
  1. ACYCLOVIR [ACICLOVIR] [Concomitant]
     Active Substance: ACYCLOVIR
  2. WELLBUTRIN [Concomitant]
     Active Substance: BUPROPION HYDROCHLORIDE
  3. MIRENA [Suspect]
     Active Substance: LEVONORGESTREL
     Indication: CONTRACEPTION
     Dosage: 24 MCG/24HR, CONT
     Route: 015
     Dates: start: 20100323, end: 20110419
  4. ELAVIL [Concomitant]
     Active Substance: AMITRIPTYLINE HYDROCHLORIDE

REACTIONS (7)
  - Device dislocation [None]
  - Emotional distress [None]
  - Uterine perforation [None]
  - Anxiety [None]
  - Pain [None]
  - Fear [None]
  - Injury [None]

NARRATIVE: CASE EVENT DATE: 201007
